FAERS Safety Report 24888496 (Version 1)
Quarter: 2025Q1

REPORT INFORMATION
  Report Type: Spontaneous
  Country: GB (occurrence: GB)
  Receive Date: 20250127
  Receipt Date: 20250127
  Transmission Date: 20250408
  Serious: Yes (Hospitalization, Other)
  Sender: ACCORD
  Company Number: None

PATIENT
  Age: 70 Year
  Sex: Male
  Weight: 91 kg

DRUGS (3)
  1. APIXABAN [Suspect]
     Active Substance: APIXABAN
     Indication: Adverse drug reaction
     Dates: start: 20241001, end: 20241208
  2. OLMESARTAN [Concomitant]
     Active Substance: OLMESARTAN
     Indication: Adverse drug reaction
  3. BISOPROLOL [Concomitant]
     Active Substance: BISOPROLOL
     Indication: Adverse drug reaction
     Dates: start: 20240928

REACTIONS (2)
  - Medication error [Unknown]
  - Gouty arthritis [Not Recovered/Not Resolved]

NARRATIVE: CASE EVENT DATE: 20241211
